FAERS Safety Report 19582715 (Version 1)
Quarter: 2021Q3

REPORT INFORMATION
  Report Type: Spontaneous
  Country: US (occurrence: US)
  Receive Date: 20210719
  Receipt Date: 20210719
  Transmission Date: 20211014
  Serious: No
  Sender: FDA-Public Use
  Company Number: US-GALDERMA-US2021012780

PATIENT

DRUGS (4)
  1. DIFFERIN GEL [Suspect]
     Active Substance: ADAPALENE
     Indication: SEBORRHOEA
  2. DIFFERIN GEL [Suspect]
     Active Substance: ADAPALENE
     Indication: ACNE
     Dosage: 1 DOSAGE FORM
     Route: 061
  3. DIFFERIN GEL [Suspect]
     Active Substance: ADAPALENE
     Indication: SKIN HYPERPIGMENTATION
  4. DIFFERIN GEL [Suspect]
     Active Substance: ADAPALENE
     Indication: SCAR

REACTIONS (4)
  - Intentional product misuse [Recovered/Resolved]
  - Skin exfoliation [Recovered/Resolved]
  - Dry skin [Unknown]
  - Acne [Recovering/Resolving]
